FAERS Safety Report 20979663 (Version 1)
Quarter: 2022Q2

REPORT INFORMATION
  Report Type: Spontaneous
  Country: US (occurrence: US)
  Receive Date: 20220620
  Receipt Date: 20220620
  Transmission Date: 20220721
  Serious: No
  Sender: FDA-Public Use
  Company Number: US-BIOGEN-2022BI01132872

PATIENT
  Sex: Female

DRUGS (3)
  1. PLEGRIDY [Suspect]
     Active Substance: PEGINTERFERON BETA-1A
     Indication: Multiple sclerosis
     Route: 065
  2. PLEGRIDY [Suspect]
     Active Substance: PEGINTERFERON BETA-1A
  3. AUBAGIO [Suspect]
     Active Substance: TERIFLUNOMIDE
     Indication: Multiple sclerosis
     Dates: start: 20140822

REACTIONS (12)
  - Malaise [Unknown]
  - Fatigue [Unknown]
  - Gait disturbance [Unknown]
  - Diarrhoea [Unknown]
  - Nasopharyngitis [Unknown]
  - Loss of control of legs [Unknown]
  - Cerebral disorder [Unknown]
  - Central nervous system lesion [Unknown]
  - Memory impairment [Unknown]
  - Fall [Recovered/Resolved]
  - Nausea [Unknown]
  - Asthenia [Unknown]
